FAERS Safety Report 9903277 (Version 1)
Quarter: 2014Q1

REPORT INFORMATION
  Report Type: Report from Study
  Country: CA (occurrence: CA)
  Receive Date: 20140217
  Receipt Date: 20140217
  Transmission Date: 20141002
  Serious: Yes (Hospitalization)
  Sender: FDA-Public Use
  Company Number: CA-ABBVIE-14P-028-1202035-00

PATIENT
  Age: 29 Year
  Sex: Male

DRUGS (1)
  1. HUMIRA [Suspect]
     Indication: CROHN^S DISEASE
     Route: 058
     Dates: start: 20101006, end: 201305

REACTIONS (2)
  - Malaise [Unknown]
  - Crohn^s disease [Unknown]
